FAERS Safety Report 6142457-4 (Version None)
Quarter: 2009Q2

REPORT INFORMATION
  Report Type: 
  Country: None (occurrence: None)
  Receive Date: 20090403
  Receipt Date: 20090326
  Transmission Date: 20091009
  Serious: Yes (Other)
  Sender: FDA-Public Use
  Company Number: GB-ASTRAZENECA-2009AP02212

PATIENT
  Age: 22982 Day
  Sex: Female

DRUGS (2)
  1. ARIMIDEX [Suspect]
     Indication: PROPHYLAXIS
     Route: 048
     Dates: start: 20080415, end: 20080708
  2. ARIMIDEX [Suspect]
     Route: 048
     Dates: start: 20080909, end: 20081021

REACTIONS (1)
  - AMNESIA [None]
